FAERS Safety Report 7544290-5 (Version None)
Quarter: 2011Q2

REPORT INFORMATION
  Report Type: 
  Country: None (occurrence: None)
  Receive Date: 20110613
  Receipt Date: 20071002
  Transmission Date: 20111010
  Serious: Yes (Hospitalization)
  Sender: FDA-Public Use
  Company Number: PHFR2007GB02884

PATIENT
  Sex: Female

DRUGS (2)
  1. CLOZAPINE [Suspect]
     Route: 048
     Dates: start: 20030101
  2. CLOZAPINE [Suspect]
     Route: 048
     Dates: start: 20040415

REACTIONS (1)
  - CEREBROVASCULAR ACCIDENT [None]
